FAERS Safety Report 9132838 (Version 1)
Quarter: 2013Q1

REPORT INFORMATION
  Report Type: Report from Study
  Country: US (occurrence: US)
  Receive Date: 20130128
  Receipt Date: 20130128
  Transmission Date: 20140127
  Serious: No
  Sender: FDA-Public Use
  Company Number: US-VERTEX PHARMACEUTICALS INC.-2013-001196

PATIENT
  Age: 59 Year
  Sex: Male

DRUGS (10)
  1. VX-950 (TELAPREVIR) [Suspect]
     Indication: HEPATITIS C
     Dosage: 750 MG, TID
     Route: 048
  2. PEGINTRON [Suspect]
     Indication: HEPATITIS C
  3. RIBAVIRIN [Suspect]
     Indication: HEPATITIS C
  4. LANTUS [Concomitant]
     Dosage: 100 / ML
  5. SOTALOL HCL [Concomitant]
     Dosage: 120 MG, UNK
  6. QUINAPRIL [Concomitant]
     Dosage: 10 MG, UNK
  7. METFORMIN [Concomitant]
     Dosage: 1000 MG, UNK
  8. GLIMEPIRIDE [Concomitant]
     Dosage: 1 MG, UNK
  9. CRESTOR [Concomitant]
     Dosage: 5 MG, UNK
  10. WARFARIN [Concomitant]
     Dosage: 1 MG, UNK

REACTIONS (1)
  - Adverse event [Unknown]
